FAERS Safety Report 16897641 (Version 1)
Quarter: 2019Q4

REPORT INFORMATION
  Report Type: Spontaneous
  Country: CN (occurrence: CN)
  Receive Date: 20191009
  Receipt Date: 20191009
  Transmission Date: 20200122
  Serious: Yes (Other)
  Sender: FDA-Public Use
  Company Number: CN-NOVOPROD-687889

PATIENT
  Age: 85 Year
  Sex: Male
  Weight: 54 kg

DRUGS (2)
  1. NOVOMIX 30 FLEXPEN [Suspect]
     Active Substance: INSULIN ASPART
     Dosage: DOSE DECREASED
     Route: 058
     Dates: end: 20190829
  2. NOVOMIX 30 FLEXPEN [Suspect]
     Active Substance: INSULIN ASPART
     Indication: DIABETES MELLITUS
     Dosage: 16 IU, QD (9 IU IN THE MORNING, 7 IU IN THE EVENING)
     Route: 058
     Dates: start: 20190731

REACTIONS (3)
  - Dizziness [Recovering/Resolving]
  - Blood glucose decreased [Unknown]
  - Palpitations [Recovering/Resolving]

NARRATIVE: CASE EVENT DATE: 20190829
